FAERS Safety Report 16353313 (Version 3)
Quarter: 2019Q3

REPORT INFORMATION
  Report Type: Spontaneous
  Country: US (occurrence: US)
  Receive Date: 20190524
  Receipt Date: 20190828
  Transmission Date: 20191004
  Serious: Yes (Hospitalization)
  Sender: FDA-Public Use
  Company Number: US-VERTEX PHARMACEUTICALS-2019-004583

PATIENT
  Age: 18 Year
  Sex: Female

DRUGS (26)
  1. IPRATROPIUM BROMIDE IVAX [Concomitant]
     Dosage: 1 SPRAY EACH NARES, EVERY 8 HOUR
     Dates: start: 20181231
  2. MONTELUKAST SODIUM. [Concomitant]
     Active Substance: MONTELUKAST SODIUM
     Dosage: 1 DOSAGE FORM, QD AT BEDTIME
     Route: 048
     Dates: start: 20160322
  3. SYMDEKO [Suspect]
     Active Substance: IVACAFTOR\TEZACAFTOR
     Indication: CYSTIC FIBROSIS
     Dosage: 100MG TEZACAFTOR/150MG IVACAFTOR; 150MG IVACAFTOR, BID
     Route: 048
     Dates: start: 20181002
  4. ADVAIR HFA [Concomitant]
     Active Substance: FLUTICASONE PROPIONATE\SALMETEROL XINAFOATE
     Dosage: 2 PUFFS, BID
     Dates: start: 20151229
  5. ALBUTEROL SULFATE. [Concomitant]
     Active Substance: ALBUTEROL SULFATE
     Dosage: UNK UNK, QID
     Dates: start: 20151229
  6. CAYSTON [Concomitant]
     Active Substance: AZTREONAM
     Dosage: 75 MILLIGRAM, TID
     Dates: start: 20120201
  7. BOOST [Concomitant]
     Active Substance: DIETARY SUPPLEMENT
     Dosage: 3 BOXES DAILY
     Route: 048
     Dates: start: 20190425
  8. BENZONATATE. [Concomitant]
     Active Substance: BENZONATATE
     Dosage: 100 MILLIGRAM, 2-3 TIMES A DAY
     Route: 048
     Dates: start: 20180516
  9. LORATADINE. [Concomitant]
     Active Substance: LORATADINE
     Dosage: 10 MILLIGRAM, 1 DOSAGE FORM
     Route: 048
     Dates: start: 20160906
  10. LORATADINE. [Concomitant]
     Active Substance: LORATADINE
     Dosage: UNK
     Dates: start: 20120809
  11. OMEPRAZOLE. [Concomitant]
     Active Substance: OMEPRAZOLE
     Dosage: 20 MILLIGRAM, 1 DOSAGE FORM, ONCE OR TWICE DAILY
     Route: 048
     Dates: start: 20131204
  12. PULMOZYME [Concomitant]
     Active Substance: DORNASE ALFA
     Dosage: UNK, BID
     Dates: start: 20180819
  13. VITAMIN D3 [Concomitant]
     Active Substance: CHOLECALCIFEROL
     Dosage: 500 UT, BID
     Route: 048
     Dates: start: 20170719
  14. CYPROHEPTADINE. [Concomitant]
     Active Substance: CYPROHEPTADINE
     Dosage: 4 MILLIGRAM, 1 DOSAGE FORM,BID
     Route: 048
     Dates: start: 20181001
  15. TOBRAMYCIN. [Concomitant]
     Active Substance: TOBRAMYCIN
     Dosage: 1 VIAL BID FOR 14 DAYS ON AND 14 DAYS OFF
     Dates: start: 20170613
  16. TRIAMCINOLONE ACETONIDE. [Concomitant]
     Active Substance: TRIAMCINOLONE ACETONIDE
     Dosage: 1 SQUIRT EACH NOSTRIL, BID
     Dates: start: 20190430
  17. RANITIDINE HCL [Concomitant]
     Active Substance: RANITIDINE HYDROCHLORIDE
     Dosage: 150 MILLIGRAM,1 DOSAGE FORM, BID
     Route: 048
     Dates: start: 20170719
  18. CREON [Concomitant]
     Active Substance: PANCRELIPASE AMYLASE\PANCRELIPASE LIPASE\PANCRELIPASE PROTEASE
     Dosage: 4-5 CAPSULES WITH MEALS, 3-4 WITH SNACKS
     Route: 048
     Dates: start: 20130625
  19. QNASL [Concomitant]
     Active Substance: BECLOMETHASONE DIPROPIONATE
     Dosage: 2 PUFFS EACH NOSTRIL, QD
     Dates: start: 20160520
  20. FEXOFENADINE HCL [Concomitant]
     Active Substance: FEXOFENADINE HYDROCHLORIDE
     Dosage: 180 MILLIGRAM, 1 DOSAGE FORM,QD
     Route: 048
     Dates: start: 20190313
  21. HEPARIN LOCK FLUSH [Concomitant]
     Active Substance: HEPARIN SODIUM
     Dosage: UNK
     Route: 042
     Dates: start: 20170417
  22. NAPROXEN. [Concomitant]
     Active Substance: NAPROXEN
     Dosage: 500 MILLIGRAM,1 DOSAGE FORM,BID
     Route: 048
     Dates: start: 20180126
  23. PROAIR HFA [Concomitant]
     Active Substance: ALBUTEROL SULFATE
     Dosage: 2 PUFFS, TID
     Dates: start: 20151229
  24. SODIUM CHLORIDE. [Concomitant]
     Active Substance: SODIUM CHLORIDE
     Dosage: UNK
     Dates: start: 20180327
  25. SULFAMETHOXAZOLE AND TRIMETHOPRIM [Concomitant]
     Active Substance: SULFAMETHOXAZOLE\TRIMETHOPRIM
     Dosage: 160 MILLIGRAM, 1 DOSAGE FORM, QD
     Route: 048
     Dates: start: 20190607
  26. LANTUS [Concomitant]
     Active Substance: INSULIN GLARGINE
     Dosage: INJECT 2 UNIT, QD
     Route: 058
     Dates: start: 20180806

REACTIONS (3)
  - Infective pulmonary exacerbation of cystic fibrosis [Recovered/Resolved]
  - Respiratory tract infection viral [Recovered/Resolved]
  - Haemoptysis [Recovered/Resolved]

NARRATIVE: CASE EVENT DATE: 20190414
